FAERS Safety Report 19276633 (Version 1)
Quarter: 2021Q2

REPORT INFORMATION
  Report Type: Spontaneous
  Country: US (occurrence: US)
  Receive Date: 20210519
  Receipt Date: 20210519
  Transmission Date: 20210717
  Serious: No
  Sender: FDA-Public Use
  Company Number: US-HORIZON-2021HZN00042

PATIENT
  Sex: Female

DRUGS (1)
  1. TEPEZZA [Suspect]
     Active Substance: TEPROTUMUMAB-TRBW
     Indication: ENDOCRINE OPHTHALMOPATHY
     Dosage: UNK
     Route: 042

REACTIONS (10)
  - Eczema [Unknown]
  - Condition aggravated [Unknown]
  - Alopecia [Unknown]
  - Migraine [Unknown]
  - Abdominal discomfort [Unknown]
  - Gingival disorder [Unknown]
  - Gingival recession [Unknown]
  - Lacrimation increased [Unknown]
  - Dry skin [Unknown]
  - Drug ineffective [Unknown]
